FAERS Safety Report 14739289 (Version 1)
Quarter: 2018Q2

REPORT INFORMATION
  Report Type: Spontaneous
  Country: FI (occurrence: FI)
  Receive Date: 20180410
  Receipt Date: 20180410
  Transmission Date: 20180711
  Serious: Yes (Hospitalization, Other)
  Sender: FDA-Public Use
  Company Number: FI-ASPEN-GLO2017FI009405

PATIENT
  Age: 82 Year
  Sex: Female

DRUGS (8)
  1. LEUKERAN [Suspect]
     Active Substance: CHLORAMBUCIL
     Dosage: UNK
     Route: 065
  2. GAZYVARO [Suspect]
     Active Substance: OBINUTUZUMAB
     Indication: CHRONIC LYMPHOCYTIC LEUKAEMIA
     Dosage: 1000 MG
     Route: 042
  3. GAZYVARO [Suspect]
     Active Substance: OBINUTUZUMAB
     Route: 042
  4. GAZYVARO [Suspect]
     Active Substance: OBINUTUZUMAB
     Route: 042
  5. GAZYVARO [Suspect]
     Active Substance: OBINUTUZUMAB
     Route: 042
  6. LEUKERAN [Suspect]
     Active Substance: CHLORAMBUCIL
     Indication: CHRONIC LYMPHOCYTIC LEUKAEMIA
     Dosage: UNK
     Route: 065
  7. GAZYVARO [Suspect]
     Active Substance: OBINUTUZUMAB
     Route: 042
  8. GAZYVARO [Suspect]
     Active Substance: OBINUTUZUMAB
     Route: 042

REACTIONS (6)
  - Therapeutic response decreased [Unknown]
  - Blood test abnormal [Unknown]
  - Respiratory tract infection [Recovered/Resolved]
  - Balance disorder [Recovered/Resolved]
  - Malaise [Recovered/Resolved]
  - Speech disorder [Recovered/Resolved]

NARRATIVE: CASE EVENT DATE: 20161011
